FAERS Safety Report 6408773-3 (Version None)
Quarter: 2009Q4

REPORT INFORMATION
  Report Type: 
  Country: None (occurrence: None)
  Receive Date: 20091021
  Receipt Date: 20091019
  Transmission Date: 20100525
  Serious: Yes (Death)
  Sender: FDA-Public Use
  Company Number: A0812409A

PATIENT

DRUGS (1)
  1. MYLERAN [Suspect]
     Indication: AMYLOIDOSIS
     Route: 048

REACTIONS (2)
  - BONE MARROW FAILURE [None]
  - DEATH [None]
